FAERS Safety Report 4908113-2 (Version None)
Quarter: 2006Q1

REPORT INFORMATION
  Report Type: 
  Country: None (occurrence: None)
  Receive Date: 20060210
  Receipt Date: 20060202
  Transmission Date: 20060701
  Serious: Yes (Other)
  Sender: FDA-Public Use
  Company Number: US-JNJFOC-20040806095

PATIENT
  Sex: Female
  Weight: 58.06 kg

DRUGS (14)
  1. DURAGESIC-100 [Suspect]
     Route: 062
  2. DURAGESIC-100 [Suspect]
     Route: 062
  3. DURAGESIC-100 [Suspect]
     Route: 062
  4. DURAGESIC-100 [Suspect]
     Route: 062
  5. ISOSORBIDE MONONITRATE [Concomitant]
  6. ALTACE [Concomitant]
  7. PREMARIN [Concomitant]
  8. NEXIUM [Concomitant]
  9. ALPRAZOLAM [Concomitant]
  10. TIZANIDINE HCL [Concomitant]
  11. COREG [Concomitant]
  12. CELEBREX [Concomitant]
  13. LIDODERM [Concomitant]
  14. FUROSEMIDE [Concomitant]

REACTIONS (44)
  - ABDOMINAL PAIN UPPER [None]
  - AGGRESSION [None]
  - AMNESIA [None]
  - ANOREXIA [None]
  - ANXIETY [None]
  - ASTHENIA [None]
  - BLOOD PRESSURE FLUCTUATION [None]
  - BONE PAIN [None]
  - CHEST PAIN [None]
  - CHILLS [None]
  - DEPRESSION [None]
  - DIARRHOEA [None]
  - DISORIENTATION [None]
  - DIZZINESS [None]
  - DRUG WITHDRAWAL SYNDROME [None]
  - DYSPNOEA [None]
  - FAECAL INCONTINENCE [None]
  - FALL [None]
  - FATIGUE [None]
  - FEELING ABNORMAL [None]
  - FRACTURE [None]
  - HALLUCINATIONS, MIXED [None]
  - HEADACHE [None]
  - HYPERHIDROSIS [None]
  - HYPOAESTHESIA ORAL [None]
  - INJURY [None]
  - INSOMNIA [None]
  - IRRITABILITY [None]
  - LOSS OF CONSCIOUSNESS [None]
  - MENTAL IMPAIRMENT [None]
  - MOOD SWINGS [None]
  - MYALGIA [None]
  - OEDEMA PERIPHERAL [None]
  - PAIN OF SKIN [None]
  - PANIC REACTION [None]
  - PARTNER STRESS [None]
  - REPETITIVE SPEECH [None]
  - SOCIAL AVOIDANT BEHAVIOUR [None]
  - SUICIDAL IDEATION [None]
  - THERAPEUTIC RESPONSE DECREASED [None]
  - URINARY INCONTINENCE [None]
  - VOMITING [None]
  - WEIGHT DECREASED [None]
  - WRONG TECHNIQUE IN DRUG USAGE PROCESS [None]
